FAERS Safety Report 5828214-4 (Version None)
Quarter: 2008Q3

REPORT INFORMATION
  Report Type: 
  Country: None (occurrence: None)
  Receive Date: 20080729
  Receipt Date: 20080714
  Transmission Date: 20090109
  Serious: Yes (Hospitalization)
  Sender: FDA-Public Use
  Company Number: 2007S1001288

PATIENT
  Age: 69 Year
  Sex: Female
  Weight: 58.9676 kg

DRUGS (10)
  1. NITROFURANTOIN MONOHYDRATE/ MACROCRYSTALS CAPSULES [Suspect]
     Indication: URINARY TRACT INFECTION
     Dosage: 100 MG; TWICE A DAY; ORAL
     Route: 048
     Dates: start: 20070111, end: 20070114
  2. PREDNISONE TAB [Suspect]
     Indication: HYPERSENSITIVITY
     Dosage: 20 MG; TWICE A DAY; ORAL
     Route: 048
     Dates: start: 20070126
  3. PREDNISONE [Suspect]
     Indication: HYPERSENSITIVITY
     Dosage: 20 MG; TWICE A DAY; ORAL
     Route: 048
     Dates: start: 20070118, end: 20070301
  4. FAMOTIDINE [Suspect]
     Dates: start: 20070301
  5. HYDROCHLOROTHIAZIDE (CON.) [Concomitant]
  6. TEMAZEPAM (CON.) [Concomitant]
  7. HYDROCODONE BITARTRATE AND ACETAMINOPHEN (CON.) [Concomitant]
  8. ATENOLOL (CON.) [Concomitant]
  9. DICYCLOVERINE HYDROCHLORIDE (CON.) [Concomitant]
  10. ACETYLSALICYLIC ACID (CON.) [Concomitant]

REACTIONS (24)
  - ABASIA [None]
  - ANAPHYLACTIC REACTION [None]
  - ARTHRALGIA [None]
  - BLOOD PRESSURE INCREASED [None]
  - DRY EYE [None]
  - DRY SKIN [None]
  - ERYTHEMA [None]
  - ERYTHEMA OF EYELID [None]
  - EYE PAIN [None]
  - EYE SWELLING [None]
  - FAT TISSUE INCREASED [None]
  - FATIGUE [None]
  - FOREIGN BODY IN EYE [None]
  - HEART RATE INCREASED [None]
  - HYPERSENSITIVITY [None]
  - IMPAIRED DRIVING ABILITY [None]
  - MOBILITY DECREASED [None]
  - OCULAR HYPERAEMIA [None]
  - PAIN [None]
  - PRURITUS [None]
  - RASH [None]
  - SWELLING FACE [None]
  - THROAT TIGHTNESS [None]
  - WEIGHT INCREASED [None]
